FAERS Safety Report 16357793 (Version 1)
Quarter: 2019Q2

REPORT INFORMATION
  Report Type: Spontaneous
  Country: IT (occurrence: IT)
  Receive Date: 20190527
  Receipt Date: 20190527
  Transmission Date: 20190711
  Serious: Yes (Other)
  Sender: FDA-Public Use
  Company Number: IT-HORIZON-PRE-0215-2019

PATIENT
  Age: 57 Year
  Sex: Male

DRUGS (8)
  1. CARBAMAZEPINE. [Interacting]
     Active Substance: CARBAMAZEPINE
     Indication: HIV INFECTION
     Dosage: 100 MG TWICE DAILY
  2. ROSUVASTIN [Concomitant]
     Active Substance: ROSUVASTATIN
     Indication: HIV INFECTION
  3. ACYCLOVIR. [Concomitant]
     Active Substance: ACYCLOVIR
     Indication: HIV INFECTION
  4. CHOLECALCIFEROL [Concomitant]
     Active Substance: CHOLECALCIFEROL
     Indication: HIV INFECTION
  5. TENOFOVIR ALAFENAMIDE/EMTRICITABINE [Concomitant]
     Indication: HIV INFECTION
     Dosage: 10/200 MG
  6. COBICISTAT/DARUNAVIR [Interacting]
     Active Substance: COBICISTAT\DARUNAVIR ETHANOLATE
     Indication: HIV INFECTION
     Dosage: 800/150 MG
  7. DIAZEPAM. [Concomitant]
     Active Substance: DIAZEPAM
     Indication: HIV INFECTION
  8. PREDNISONE. [Suspect]
     Active Substance: PREDNISONE
     Indication: HIV INFECTION
     Dosage: 25 MG TWICE DAILY

REACTIONS (2)
  - Drug level decreased [Unknown]
  - Drug interaction [Unknown]
